FAERS Safety Report 9291283 (Version 2)
Quarter: 2013Q4

REPORT INFORMATION
  Report Type: Spontaneous
  Country: US (occurrence: US)
  Receive Date: 20130515
  Receipt Date: 20131028
  Transmission Date: 20140711
  Serious: Yes (Hospitalization)
  Sender: FDA-Public Use
  Company Number: US-B.I. PHARMACEUTICALS,INC./RIDGEFIELD-2013-BI-13317BP

PATIENT
  Age: 70 Year
  Sex: Male
  Weight: 158.76 kg

DRUGS (23)
  1. PRADAXA [Suspect]
     Indication: ANTICOAGULANT THERAPY
     Dosage: 300 MG
     Route: 048
     Dates: start: 20110429, end: 20111109
  2. PRADAXA [Suspect]
     Indication: ATRIAL FIBRILLATION
  3. INSULIN LANTUS [Concomitant]
     Indication: DIABETES MELLITUS
  4. CELEBREX [Concomitant]
     Indication: BACK PAIN
     Dosage: 200 MG
     Dates: start: 2006, end: 2013
  5. DILTIAZEM HCL [Concomitant]
     Dosage: 120 MG
     Dates: start: 2006, end: 2013
  6. ECOTRIN [Concomitant]
     Dosage: 81 MG
  7. FENTANYL [Concomitant]
     Indication: BACK PAIN
  8. LASIX [Concomitant]
     Indication: ATRIAL FIBRILLATION
     Dosage: 40 MG
     Dates: start: 2006, end: 2013
  9. METOPROLOL [Concomitant]
     Dosage: 50 MG
     Dates: start: 2006, end: 2013
  10. MULTIVITAMIN [Concomitant]
  11. NOVOLOG [Concomitant]
     Dates: start: 2006, end: 2013
  12. KCL [Concomitant]
     Dosage: 20 MEQ
     Dates: start: 2006, end: 2013
  13. QUINAPRIL [Concomitant]
     Dosage: 10 MG
     Route: 048
     Dates: start: 2006, end: 2013
  14. SERTRALINE [Concomitant]
     Dosage: 50 MG
     Route: 048
  15. NOVOFINE [Concomitant]
     Dates: start: 2006, end: 2013
  16. METFORMIN [Concomitant]
     Dates: start: 2006, end: 2013
  17. HYDROCODONE [Concomitant]
     Indication: BACK PAIN
     Dates: start: 2006, end: 2013
  18. ZOCOR [Concomitant]
     Indication: HYPERLIPIDAEMIA
     Dates: start: 2006, end: 2013
  19. ACTOS [Concomitant]
     Dates: start: 2006, end: 2013
  20. LEVAQUIN [Concomitant]
     Dates: start: 2008, end: 2013
  21. PANTOPRAZOLE [Concomitant]
  22. ADVAIR [Concomitant]
  23. TAMSULOSIN [Concomitant]

REACTIONS (4)
  - Gastrointestinal haemorrhage [Unknown]
  - Haemorrhagic anaemia [Unknown]
  - Coagulopathy [Unknown]
  - Acute myocardial infarction [Unknown]
